FAERS Safety Report 4650934-8 (Version None)
Quarter: 2005Q2

REPORT INFORMATION
  Report Type: 
  Country: None (occurrence: None)
  Receive Date: 20050503
  Receipt Date: 20050421
  Transmission Date: 20051028
  Serious: Yes (Disabling)
  Sender: FDA-Public Use
  Company Number: US-GLAXOSMITHKLINE-A0555123A

PATIENT
  Age: 71 Year
  Sex: Female
  Weight: 75 kg

DRUGS (2)
  1. AQUAFRESH FLUORIDE PROTECTION TOOTHPASTE TUBE [Suspect]
     Indication: DENTAL CLEANING
  2. SYNTHROID [Concomitant]
     Indication: HYPOTHYROIDISM

REACTIONS (3)
  - BLINDNESS [None]
  - MACULAR DEGENERATION [None]
  - VISUAL ACUITY REDUCED [None]
